FAERS Safety Report 20826232 (Version 1)
Quarter: 2022Q2

REPORT INFORMATION
  Report Type: Spontaneous
  Country: US (occurrence: US)
  Receive Date: 20220513
  Receipt Date: 20220513
  Transmission Date: 20220720
  Serious: Yes (Death, Other)
  Sender: FDA-Public Use
  Company Number: US-009507513-2205USA002834

PATIENT
  Age: 52 Year
  Sex: Female

DRUGS (86)
  1. NOXAFIL [Suspect]
     Active Substance: POSACONAZOLE
     Dosage: 300 MG, TWICE DAILY; (IN D5W 100ML)
     Route: 042
     Dates: start: 202204
  2. NOXAFIL [Suspect]
     Active Substance: POSACONAZOLE
     Dosage: UNK
     Route: 048
     Dates: start: 20220328, end: 202204
  3. DEXTROSE\WATER [Concomitant]
     Active Substance: DEXTROSE\WATER
     Dosage: 100 ML, TWICE DAILY
  4. TYLENOL [Concomitant]
     Active Substance: ACETAMINOPHEN
     Dosage: UNK
  5. AMINO ACIDS\DEXTROSE\ELECTROLYTES NOS\SOYBEAN OIL [Concomitant]
     Active Substance: AMINO ACIDS\DEXTROSE\ELECTROLYTES NOS\SOYBEAN OIL
     Dosage: UNK
  6. ALBUMIN HUMAN [Concomitant]
     Active Substance: ALBUMIN HUMAN
     Dosage: DOSE X1
  7. PROVENTIL [Concomitant]
     Active Substance: ALBUTEROL
     Dosage: NEBULIZER
  8. ALTEPLASE [Concomitant]
     Active Substance: ALTEPLASE
     Indication: Catheter management
     Dosage: AS NEEDED
  9. ALUMINUM HYDROXIDE\MAGNESIUM HYDROXIDE [Concomitant]
     Active Substance: ALUMINUM HYDROXIDE\MAGNESIUM HYDROXIDE
     Dosage: UNK
  10. AMIODARONE [Concomitant]
     Active Substance: AMIODARONE
     Dosage: UNK
  11. AMLODIPINE [Concomitant]
     Active Substance: AMLODIPINE BESYLATE
     Dosage: UNK
  12. THYMOGLOBULIN [Concomitant]
     Active Substance: LAPINE T-LYMPHOCYTE IMMUNE GLOBULIN
     Dosage: X 3 DOSE
  13. ATROPINE [Concomitant]
     Active Substance: ATROPINE
     Dosage: UNK
  14. BARIUM [Concomitant]
     Active Substance: BARIUM
     Dosage: UNK
  15. BUSULFAN [Concomitant]
     Active Substance: BUSULFAN
     Dosage: UNK
  16. CALCIUM GLUCONATE [Concomitant]
     Active Substance: CALCIUM GLUCONATE
     Dosage: UNK
  17. CARVEDILOL [Concomitant]
     Active Substance: CARVEDILOL
     Dosage: UNK
  18. CEFEPIME [Concomitant]
     Active Substance: CEFEPIME HYDROCHLORIDE
     Dosage: 2 GRAMS
  19. CETAPHIL HUMECTANTE [Concomitant]
     Dosage: UNK
  20. CYCLOPHOSPHAMIDE [Concomitant]
     Active Substance: CYCLOPHOSPHAMIDE
     Dosage: UNK
  21. DEXAMETHASONE [Concomitant]
     Active Substance: DEXAMETHASONE
     Dosage: UNK
  22. DILTIAZEM [Concomitant]
     Active Substance: DILTIAZEM
     Dosage: UNK
  23. EPINEPHRINE [Concomitant]
     Active Substance: EPINEPHRINE
     Dosage: UNK
  24. FAMOTIDINE [Concomitant]
     Active Substance: FAMOTIDINE
     Dosage: UNK
  25. FENTANYL [Concomitant]
     Active Substance: FENTANYL
     Dosage: UNK
  26. DIFICID [Concomitant]
     Active Substance: FIDAXOMICIN
     Dosage: UNK
     Route: 048
  27. FILGRASTIM [Concomitant]
     Active Substance: FILGRASTIM
     Dosage: UNK
  28. FLUCONAZOLE [Concomitant]
     Active Substance: FLUCONAZOLE
     Dosage: UNK
  29. FLUDARABINE [Concomitant]
     Active Substance: FLUDARABINE PHOSPHATE
     Dosage: UNK
  30. EMEND [Concomitant]
     Active Substance: APREPITANT
     Dosage: UNK
     Route: 048
  31. LASIX [Concomitant]
     Active Substance: FUROSEMIDE
     Dosage: UNK
  32. GABAPENTIN [Concomitant]
     Active Substance: GABAPENTIN
     Dosage: UNK
  33. GUAIFENESIN [Concomitant]
     Active Substance: GUAIFENESIN
     Dosage: UNK
  34. HALOPERIDOL [Concomitant]
     Active Substance: HALOPERIDOL
     Dosage: UNK
  35. HEPARIN SODIUM [Concomitant]
     Active Substance: HEPARIN SODIUM
     Indication: Catheter management
     Dosage: UNK
  36. HYDRALAZINE [Concomitant]
     Active Substance: HYDRALAZINE HYDROCHLORIDE
     Dosage: UNK
  37. HYDROCORTISONE [Concomitant]
     Active Substance: HYDROCORTISONE
     Dosage: UNK
  38. HYDROMORPHONE [Concomitant]
     Active Substance: HYDROMORPHONE
     Dosage: UNK
  39. HYDROXYZINE [Concomitant]
     Active Substance: HYDROXYZINE HYDROCHLORIDE
     Dosage: UNK
  40. NPH INSULIN [Concomitant]
     Active Substance: INSULIN BEEF
     Dosage: UNK
  41. X-OPAQUE [Concomitant]
     Dosage: UNK
  42. IPRATROPIUM [Concomitant]
     Active Substance: IPRATROPIUM
     Dosage: UNK
  43. LABETALOL [Concomitant]
     Active Substance: LABETALOL\LABETALOL HYDROCHLORIDE
     Dosage: UNK
     Route: 042
  44. LEUCOVORIN [Concomitant]
     Active Substance: LEUCOVORIN
     Dosage: UNK
     Route: 048
  45. KEPPRA [Concomitant]
     Active Substance: LEVETIRACETAM
     Dosage: UNK
  46. LEVOFLOXACIN [Concomitant]
     Active Substance: LEVOFLOXACIN
     Dosage: UNK
  47. LIDOCAINE [Concomitant]
     Active Substance: LIDOCAINE
     Dosage: UNK
  48. IMODIUM [Concomitant]
     Active Substance: LOPERAMIDE HYDROCHLORIDE
     Dosage: UNK
  49. LORAZEPAM [Concomitant]
     Active Substance: LORAZEPAM
     Dosage: UNK
  50. MAGNESIUM [Concomitant]
     Active Substance: MAGNESIUM
     Dosage: UNK
  51. MELATONIN [Concomitant]
     Active Substance: MELATONIN
     Indication: Sleep disorder
     Dosage: 3 MG
  52. DEMEROL [Concomitant]
     Active Substance: MEPERIDINE HYDROCHLORIDE
     Dosage: UNK
  53. MEROPENEM [Concomitant]
     Active Substance: MEROPENEM
     Dosage: UNK
  54. MESNA [Concomitant]
     Active Substance: MESNA
     Dosage: UNK
  55. METHOTREXATE [Concomitant]
     Active Substance: METHOTREXATE
     Dosage: UNK
  56. METHYLPREDNISOLONE [Concomitant]
     Active Substance: METHYLPREDNISOLONE
     Dosage: UNK
  57. METOLAZONE [Concomitant]
     Active Substance: METOLAZONE
     Dosage: UNK
  58. METOPROLOL [Concomitant]
     Active Substance: METOPROLOL
     Dosage: UNK
  59. MICAFUNGIN [Concomitant]
     Active Substance: MICAFUNGIN
     Dosage: UNK
  60. VERSED [Concomitant]
     Active Substance: MIDAZOLAM HYDROCHLORIDE
     Dosage: UNK
  61. MORPHINE [Concomitant]
     Active Substance: MORPHINE
     Dosage: UNK
  62. NICARDIPINE [Concomitant]
     Active Substance: NICARDIPINE
     Dosage: UNK
  63. NOREPINEPHRINE [Concomitant]
     Active Substance: NOREPINEPHRINE
     Dosage: UNK
  64. OLANZAPINE [Concomitant]
     Active Substance: OLANZAPINE
     Dosage: UNK
  65. ZOFRAN [Concomitant]
     Active Substance: ONDANSETRON HYDROCHLORIDE
     Dosage: UNK
  66. OXYCODONE [Concomitant]
     Active Substance: OXYCODONE
     Dosage: UNK
  67. OMEPRAZOLE [Concomitant]
     Active Substance: OMEPRAZOLE
     Dosage: UNK
  68. PENTAMIDINE [Concomitant]
     Active Substance: PENTAMIDINE
     Dosage: UNK
  69. PHENYLEPHRINE [Concomitant]
     Active Substance: PHENYLEPHRINE HYDROCHLORIDE
     Dosage: UNK
  70. VITAMIN K [Concomitant]
     Active Substance: PHYTONADIONE
     Dosage: UNK
  71. ZOSYN [Concomitant]
     Active Substance: PIPERACILLIN SODIUM\TAZOBACTAM SODIUM
     Dosage: UNK
  72. POTASSIUM CHLORIDE [Concomitant]
     Active Substance: POTASSIUM CHLORIDE
     Dosage: UNK
  73. PROCHLORPERAZINE EDISYLATE [Concomitant]
     Active Substance: PROCHLORPERAZINE EDISYLATE
     Dosage: UNK
  74. PROMETHAZINE [Concomitant]
     Active Substance: PROMETHAZINE HYDROCHLORIDE
     Dosage: UNK
  75. PROPOFOL [Concomitant]
     Active Substance: PROPOFOL
     Dosage: UNK
  76. SEROQUEL [Concomitant]
     Active Substance: QUETIAPINE FUMARATE
     Dosage: UNK
  77. SCOPOLAMINE [Concomitant]
     Active Substance: SCOPOLAMINE
     Dosage: UNK
  78. SEVELAMER [Concomitant]
     Active Substance: SEVELAMER
     Dosage: UNK
  79. BACTRIM [Concomitant]
     Active Substance: SULFAMETHOXAZOLE\TRIMETHOPRIM
     Dosage: UNK
  80. TACROLIMUS [Concomitant]
     Active Substance: TACROLIMUS
     Dosage: UNK
  81. PROGRAM 20 [Concomitant]
     Dosage: UNK
  82. TRANEXAMIC ACID [Concomitant]
     Active Substance: TRANEXAMIC ACID
     Dosage: UNK
  83. URSODIOL [Concomitant]
     Active Substance: URSODIOL
     Dosage: UNK
  84. VALACYCLOVIR HYDROCHLORIDE [Concomitant]
     Active Substance: VALACYCLOVIR HYDROCHLORIDE
     Dosage: UNK
  85. VANCOMYCIN [Concomitant]
     Active Substance: VANCOMYCIN
     Dosage: UNK
  86. VASOPRESSIN [Concomitant]
     Active Substance: VASOPRESSIN
     Dosage: UNK

REACTIONS (5)
  - Death [Fatal]
  - Acute respiratory failure [Unknown]
  - Thrombocytopenia [Unknown]
  - Allogenic stem cell transplantation [Unknown]
  - Product storage error [Unknown]

NARRATIVE: CASE EVENT DATE: 20220328
